FAERS Safety Report 18568404 (Version 2)
Quarter: 2020Q4

REPORT INFORMATION
  Report Type: Spontaneous
  Country: US (occurrence: US)
  Receive Date: 20201202
  Receipt Date: 20201223
  Transmission Date: 20210114
  Serious: Yes (Life-Threatening, Other)
  Sender: FDA-Public Use
  Company Number: US-TAKEDA-2020TUS044397

PATIENT
  Age: 17 Year
  Sex: Male

DRUGS (2)
  1. TOPIRAMATE. [Concomitant]
     Active Substance: TOPIRAMATE
     Dosage: 100 MILLIGRAM
     Route: 065
  2. 503 (GUANFACINE HYDROCHLORIDE) [Suspect]
     Active Substance: GUANFACINE HYDROCHLORIDE
     Indication: ATTENTION DEFICIT HYPERACTIVITY DISORDER
     Dosage: 80 MILLIGRAM
     Route: 065

REACTIONS (3)
  - Toxicity to various agents [Unknown]
  - Pulmonary oedema [Unknown]
  - Overdose [Unknown]
